FAERS Safety Report 8244463-2 (Version None)
Quarter: 2012Q1

REPORT INFORMATION
  Report Type: 
  Country: None (occurrence: None)
  Receive Date: 20120329
  Receipt Date: 20120321
  Transmission Date: 20120608
  Serious: Yes (Hospitalization)
  Sender: FDA-Public Use
  Company Number: US-BAYER-2011-062931

PATIENT
  Age: 45 Year
  Sex: Female
  Weight: 61 kg

DRUGS (3)
  1. CIPROFLOXACIN [Concomitant]
     Indication: PYELONEPHRITIS
     Dosage: 500 MG, UNK
     Route: 048
     Dates: start: 20090703
  2. DROSPIRENONE AND ETHINYL ESTRADIOL [Suspect]
     Indication: PREMENSTRUAL SYNDROME
     Dosage: UNK
     Dates: start: 20090201, end: 20090701
  3. DIFLUCAN [Concomitant]
     Dosage: UNK
     Route: 048
     Dates: start: 20090707

REACTIONS (5)
  - INJURY [None]
  - EMOTIONAL DISTRESS [None]
  - DEEP VEIN THROMBOSIS [None]
  - ANXIETY [None]
  - PAIN [None]
